FAERS Safety Report 4495968-1 (Version None)
Quarter: 2004Q4

REPORT INFORMATION
  Report Type: 
  Country: None (occurrence: None)
  Receive Date: 20041108
  Receipt Date: 20041008
  Transmission Date: 20050328
  Serious: Yes (Other)
  Sender: FDA-Public Use
  Company Number: US-NOVOPROD-239734

PATIENT
  Age: 77 Year
  Sex: Female
  Weight: 62 kg

DRUGS (5)
  1. NOVOLOG MIX 70/30 [Suspect]
     Indication: INSULIN-REQUIRING TYPE II DIABETES MELLITUS
     Dosage: 25 IU, QD
     Route: 058
     Dates: start: 20040921, end: 20040921
  2. NOVOLOG MIX 70/30 [Suspect]
     Dosage: 10 IU, BID
     Route: 058
     Dates: start: 20040922
  3. PLAVIX [Concomitant]
     Indication: CARDIAC DISORDER
     Dates: start: 20020101
  4. EPOGEN [Concomitant]
     Indication: ANAEMIA
     Dates: start: 20040101
  5. ZOCOR [Concomitant]
     Indication: BLOOD CHOLESTEROL INCREASED
     Dates: start: 20040501

REACTIONS (4)
  - ANAEMIA [None]
  - BLOOD GLUCOSE DECREASED [None]
  - FALL [None]
  - SYNCOPE [None]
